FAERS Safety Report 22592133 (Version 1)
Quarter: 2023Q2

REPORT INFORMATION
  Report Type: Spontaneous
  Country: CA (occurrence: CA)
  Receive Date: 20230612
  Receipt Date: 20230612
  Transmission Date: 20230721
  Serious: Yes (Other)
  Sender: FDA-Public Use
  Company Number: CA-ABBVIE-5284670

PATIENT
  Sex: Male

DRUGS (5)
  1. HUMIRA [Suspect]
     Active Substance: ADALIMUMAB
     Indication: Hidradenitis
     Route: 058
  2. PREDNISONE [Suspect]
     Active Substance: PREDNISONE
     Indication: Inflammation
     Route: 065
  3. KEFLEX [Suspect]
     Active Substance: CEPHALEXIN
     Indication: Hidradenitis
     Route: 065
  4. ACITRETIN [Suspect]
     Active Substance: ACITRETIN
     Indication: Hidradenitis
     Route: 065
  5. DAPSONE [Suspect]
     Active Substance: DAPSONE
     Indication: Hidradenitis
     Route: 065

REACTIONS (6)
  - Abscess [Not Recovered/Not Resolved]
  - Drug ineffective [Not Recovered/Not Resolved]
  - Pain [Not Recovered/Not Resolved]
  - Skin lesion [Not Recovered/Not Resolved]
  - Condition aggravated [Not Recovered/Not Resolved]
  - Hidradenitis [Not Recovered/Not Resolved]
